FAERS Safety Report 8391874-0 (Version None)
Quarter: 2012Q2

REPORT INFORMATION
  Report Type: 
  Country: None (occurrence: None)
  Receive Date: 20120529
  Receipt Date: 20120511
  Transmission Date: 20120825
  Serious: Yes (Life-Threatening, Hospitalization, Other)
  Sender: FDA-Public Use
  Company Number: US-VIIV HEALTHCARE LIMITED-A0977339A

PATIENT
  Age: 65 Year
  Sex: Male
  Weight: 80.9 kg

DRUGS (2)
  1. SELZENTRY [Suspect]
     Indication: HIV INFECTION
     Route: 048
  2. PROTEASE INHIBITOR [Suspect]

REACTIONS (4)
  - CHEST PAIN [None]
  - PLAQUE SHIFT [None]
  - CORONARY ARTERY DISEASE [None]
  - CORONARY ARTERIAL STENT INSERTION [None]
